FAERS Safety Report 8885709 (Version 1)
Quarter: 2012Q4

REPORT INFORMATION
  Report Type: 
  Country: US (occurrence: US)
  Receive Date: 20121101
  Receipt Date: 20121101
  Transmission Date: 20130627
  Serious: No
  Sender: FDA-Public Use
  Company Number: US-PFIZER INC-2012268517

PATIENT
  Age: 48 Year
  Sex: Female
  Weight: 100.23 kg

DRUGS (6)
  1. CHANTIX [Suspect]
     Indication: SMOKING CESSATION THERAPY
     Dosage: 0.5 mg, 1x/day
     Route: 048
     Dates: start: 2009, end: 2009
  2. LISINOPRIL [Concomitant]
     Indication: BLOOD PRESSURE HIGH
     Dosage: 10 mg, 1x/day
  3. SIMVASTATIN [Concomitant]
     Indication: HIGH CHOLESTEROL
     Dosage: 20 mg, 1x/day
  4. ESTRADIOL [Concomitant]
     Indication: MENOPAUSE
     Dosage: 0.05 mg, 1x/day
  5. ALPRAZOLAM [Concomitant]
     Indication: ANXIETY
     Dosage: 0.05 mg, 1x/day
  6. IBUPROFEN [Concomitant]
     Dosage: UNK

REACTIONS (2)
  - Nausea [Recovered/Resolved]
  - Drug administration error [Unknown]
